FAERS Safety Report 5496975-2 (Version None)
Quarter: 2007Q4

REPORT INFORMATION
  Report Type: 
  Country: None (occurrence: None)
  Receive Date: 20071023
  Receipt Date: 20071007
  Transmission Date: 20080405
  Serious: Yes (Life-Threatening, Hospitalization)
  Sender: FDA-Public Use
  Company Number: DSA_30739_2007

PATIENT
  Sex: Male

DRUGS (24)
  1. LORAZEPAM [Suspect]
     Indication: DEPRESSION
     Dosage: (3 MG QD), (2.5 MG QD), ( 2 MG QD), (1 MG QD), (2.5 MG QD)
     Dates: start: 20070630, end: 20070703
  2. LORAZEPAM [Suspect]
     Indication: SUICIDAL IDEATION
     Dosage: (3 MG QD), (2.5 MG QD), ( 2 MG QD), (1 MG QD), (2.5 MG QD)
     Dates: start: 20070630, end: 20070703
  3. LORAZEPAM [Suspect]
     Indication: DEPRESSION
     Dosage: (3 MG QD), (2.5 MG QD), ( 2 MG QD), (1 MG QD), (2.5 MG QD)
     Dates: start: 20070704, end: 20070708
  4. LORAZEPAM [Suspect]
     Indication: SUICIDAL IDEATION
     Dosage: (3 MG QD), (2.5 MG QD), ( 2 MG QD), (1 MG QD), (2.5 MG QD)
     Dates: start: 20070704, end: 20070708
  5. LORAZEPAM [Suspect]
     Indication: DEPRESSION
     Dosage: (3 MG QD), (2.5 MG QD), ( 2 MG QD), (1 MG QD), (2.5 MG QD)
     Dates: start: 20070709, end: 20070709
  6. LORAZEPAM [Suspect]
     Indication: SUICIDAL IDEATION
     Dosage: (3 MG QD), (2.5 MG QD), ( 2 MG QD), (1 MG QD), (2.5 MG QD)
     Dates: start: 20070709, end: 20070709
  7. LORAZEPAM [Suspect]
     Indication: DEPRESSION
     Dosage: (3 MG QD), (2.5 MG QD), ( 2 MG QD), (1 MG QD), (2.5 MG QD)
     Dates: start: 20070710, end: 20070710
  8. LORAZEPAM [Suspect]
     Indication: SUICIDAL IDEATION
     Dosage: (3 MG QD), (2.5 MG QD), ( 2 MG QD), (1 MG QD), (2.5 MG QD)
     Dates: start: 20070710, end: 20070710
  9. LORAZEPAM [Suspect]
     Indication: DEPRESSION
     Dosage: (3 MG QD), (2.5 MG QD), ( 2 MG QD), (1 MG QD), (2.5 MG QD)
     Dates: start: 20070711, end: 20070711
  10. LORAZEPAM [Suspect]
     Indication: SUICIDAL IDEATION
     Dosage: (3 MG QD), (2.5 MG QD), ( 2 MG QD), (1 MG QD), (2.5 MG QD)
     Dates: start: 20070711, end: 20070711
  11. VENLAFAXINE HYDROCHLORIDE [Suspect]
     Indication: DEPRESSION
     Dosage: (150 MG QD), (225 MG QD), (300 MG QD)
     Dates: start: 20070628, end: 20070708
  12. VENLAFAXINE HYDROCHLORIDE [Suspect]
     Indication: SUICIDAL IDEATION
     Dosage: (150 MG QD), (225 MG QD), (300 MG QD)
     Dates: start: 20070628, end: 20070708
  13. VENLAFAXINE HYDROCHLORIDE [Suspect]
     Indication: DEPRESSION
     Dosage: (150 MG QD), (225 MG QD), (300 MG QD)
     Dates: start: 20070709, end: 20070711
  14. VENLAFAXINE HYDROCHLORIDE [Suspect]
     Indication: SUICIDAL IDEATION
     Dosage: (150 MG QD), (225 MG QD), (300 MG QD)
     Dates: start: 20070709, end: 20070711
  15. VENLAFAXINE HYDROCHLORIDE [Suspect]
     Indication: DEPRESSION
     Dosage: (150 MG QD), (225 MG QD), (300 MG QD)
     Dates: start: 20070712, end: 20070905
  16. VENLAFAXINE HYDROCHLORIDE [Suspect]
     Indication: SUICIDAL IDEATION
     Dosage: (150 MG QD), (225 MG QD), (300 MG QD)
     Dates: start: 20070712, end: 20070905
  17. TRAZODONE HYDROCHLORIDE [Suspect]
     Indication: DEPRESSION
     Dosage: (150 MG/KG QD), (300 MG QD)
     Dates: start: 20070628, end: 20070912
  18. TRAZODONE HYDROCHLORIDE [Suspect]
     Indication: SUICIDAL IDEATION
     Dosage: (150 MG/KG QD), (300 MG QD)
     Dates: start: 20070628, end: 20070912
  19. TRAZODONE HYDROCHLORIDE [Suspect]
     Indication: DEPRESSION
     Dosage: (150 MG/KG QD), (300 MG QD)
     Dates: start: 20070913
  20. TRAZODONE HYDROCHLORIDE [Suspect]
     Indication: SUICIDAL IDEATION
     Dosage: (150 MG/KG QD), (300 MG QD)
     Dates: start: 20070913
  21. ZELDOX /01487002/ [Concomitant]
  22. DOMINAL [Concomitant]
  23. NEXIUM [Concomitant]
  24. MOVICOL /01749801/ [Concomitant]

REACTIONS (7)
  - CONDITION AGGRAVATED [None]
  - DEPRESSION [None]
  - HAEMORRHAGE [None]
  - INTENTIONAL SELF-INJURY [None]
  - SUICIDAL IDEATION [None]
  - SUICIDE ATTEMPT [None]
  - VENOUS INJURY [None]
